FAERS Safety Report 9832880 (Version 1)
Quarter: 2014Q1

REPORT INFORMATION
  Report Type: Spontaneous
  Country: US (occurrence: US)
  Receive Date: 20140121
  Receipt Date: 20140121
  Transmission Date: 20141002
  Serious: Yes (Hospitalization)
  Sender: FDA-Public Use
  Company Number: US-PFIZER INC-2014013848

PATIENT
  Age: 77 Year
  Sex: Female
  Weight: 75.28 kg

DRUGS (5)
  1. LIPITOR [Suspect]
     Indication: BLOOD CHOLESTEROL INCREASED
     Dosage: 10 MG, 1X/DAY
     Route: 048
  2. ARTHROTEC [Suspect]
     Indication: ARTHRITIS
     Dosage: 0.2 MG/50 MG, 2X/DAY
     Route: 048
  3. PREDNISONE [Concomitant]
     Indication: ARTHRITIS
     Dosage: UNK
  4. FOLIC ACID [Concomitant]
     Dosage: UNK
  5. REMICADE [Concomitant]
     Indication: ARTHRITIS
     Dosage: UNK, EVERY SIX WEEKS

REACTIONS (3)
  - Cardiac disorder [Unknown]
  - Heart rate increased [Unknown]
  - Hypoacusis [Unknown]
